FAERS Safety Report 17676330 (Version 1)
Quarter: 2020Q2

REPORT INFORMATION
  Report Type: Spontaneous
  Country: US (occurrence: US)
  Receive Date: 20200416
  Receipt Date: 20200416
  Transmission Date: 20200714
  Serious: Yes (Life-Threatening)
  Sender: FDA-Public Use
  Company Number: None

PATIENT
  Age: 29 Year
  Sex: Male
  Weight: 81 kg

DRUGS (4)
  1. PROZASIN [Concomitant]
  2. QUETIAPINE FUMERATE EXTENDED RELEASE [Suspect]
     Active Substance: QUETIAPINE FUMARATE
     Indication: BIPOLAR I DISORDER
     Dosage: ?          QUANTITY:30 TABLET(S);?
     Route: 048
     Dates: start: 20200308, end: 20200408
  3. SYMTUZA [Concomitant]
     Active Substance: COBICISTAT\DARUNAVIR\EMTRICITABINE\TENOFOVIR ALAFENAMIDE
  4. NEPROXIN SODIUM [Concomitant]

REACTIONS (5)
  - Nausea [None]
  - Feeling hot [None]
  - Hyperthermia [None]
  - Abdominal pain [None]
  - Motor dysfunction [None]

NARRATIVE: CASE EVENT DATE: 20200408
